FAERS Safety Report 24077658 (Version 3)
Quarter: 2024Q3

REPORT INFORMATION
  Report Type: Spontaneous
  Country: JP (occurrence: JP)
  Receive Date: 20240711
  Receipt Date: 20240909
  Transmission Date: 20241016
  Serious: Yes (Hospitalization)
  Sender: ROCHE
  Company Number: JP-CHUGAI-2024022652

PATIENT
  Age: 61 Year
  Sex: Male
  Weight: 74.2 kg

DRUGS (1)
  1. HEMLIBRA [Suspect]
     Active Substance: EMICIZUMAB-KXWH
     Indication: Haemophilia A with anti factor VIII
     Dosage: UNK
     Route: 050

REACTIONS (3)
  - Benign bone neoplasm [Recovered/Resolved]
  - Odontogenic cyst [Recovered/Resolved]
  - Haemorrhagic disorder [Recovered/Resolved]

NARRATIVE: CASE EVENT DATE: 20200520
